FAERS Safety Report 24327615 (Version 1)
Quarter: 2024Q3

REPORT INFORMATION
  Report Type: Spontaneous
  Country: AT (occurrence: AT)
  Receive Date: 20240917
  Receipt Date: 20240917
  Transmission Date: 20241016
  Serious: Yes (Death)
  Sender: ELI LILLY AND CO
  Company Number: AT-ELI_LILLY_AND_COMPANY-AT202409007856

PATIENT
  Sex: Female

DRUGS (2)
  1. JAYPIRCA [Suspect]
     Active Substance: PIRTOBRUTINIB
     Indication: Mantle cell lymphoma
     Dosage: UNK UNK, UNKNOWN
     Route: 065
  2. JAYPIRCA [Suspect]
     Active Substance: PIRTOBRUTINIB
     Indication: Lymphocyte adoptive therapy

REACTIONS (2)
  - Septic shock [Fatal]
  - Cachexia [Unknown]
